FAERS Safety Report 25320453 (Version 3)
Quarter: 2025Q2

REPORT INFORMATION
  Report Type: Spontaneous
  Country: US (occurrence: None)
  Receive Date: 20250515
  Receipt Date: 20250610
  Transmission Date: 20250717
  Serious: No
  Sender: INCYTE
  Company Number: US-INCYTE CORPORATION-2025IN004674

PATIENT

DRUGS (1)
  1. OPZELURA [Suspect]
     Active Substance: RUXOLITINIB PHOSPHATE
     Indication: Lip exfoliation

REACTIONS (4)
  - Lip blister [Unknown]
  - Application site irritation [Unknown]
  - Accidental exposure to product [Unknown]
  - Off label use [Unknown]
